FAERS Safety Report 7921110-8 (Version None)
Quarter: 2011Q4

REPORT INFORMATION
  Report Type: 
  Country: None (occurrence: None)
  Receive Date: 20111117
  Receipt Date: 20111107
  Transmission Date: 20120403
  Serious: Yes (Hospitalization)
  Sender: FDA-Public Use
  Company Number: US-ELI_LILLY_AND_COMPANY-US201110002758

PATIENT
  Sex: Male
  Weight: 46.7 kg

DRUGS (7)
  1. BEVACIZUMAB [Suspect]
     Indication: HEAD AND NECK CANCER
     Dosage: 15 MG/KG, DAY 1 EVERY 21 DAYS
     Route: 042
     Dates: start: 20110809
  2. FENTANYL [Concomitant]
  3. CETUXIMAB [Suspect]
     Dosage: 250 MG/M2, WEEKLY (1/W)
     Route: 042
     Dates: start: 20110801
  4. RADIATION [Suspect]
     Indication: HEAD AND NECK CANCER
     Dosage: 70 DF, (GY) M-F DAILY
     Dates: start: 20110809
  5. OXYCODONE HCL [Concomitant]
     Indication: PAIN
     Dosage: 30 MG, EVERY 4 HRS
     Route: 048
  6. PEMETREXED [Suspect]
     Indication: HEAD AND NECK CANCER
     Dosage: 500 MG/M2, DAY 1 EVERY 21 DAYS
     Route: 042
     Dates: start: 20110809
  7. CETUXIMAB [Suspect]
     Indication: HEAD AND NECK CANCER
     Dosage: 400 MG/M2, SINGLE
     Route: 042
     Dates: start: 20110801

REACTIONS (3)
  - PAIN [None]
  - HYPOVOLAEMIC SHOCK [None]
  - PNEUMONIA [None]
